FAERS Safety Report 11726764 (Version 3)
Quarter: 2015Q4

REPORT INFORMATION
  Report Type: Other
  Country: US (occurrence: US)
  Receive Date: 20151112
  Receipt Date: 20151125
  Transmission Date: 20160304
  Serious: Yes (Hospitalization)
  Sender: FDA-Public Use
  Company Number: US-UNITED THERAPEUTICS-UNT-2015-014058

PATIENT
  Age: 49 Year
  Sex: Male
  Weight: 59.86 kg

DRUGS (5)
  1. ORENITRAM [Suspect]
     Active Substance: TREPROSTINIL
     Dosage: UNK MG, UNK
  2. ORENITRAM [Suspect]
     Active Substance: TREPROSTINIL
     Dosage: UNK
  3. REVATIO [Concomitant]
     Active Substance: SILDENAFIL CITRATE
     Indication: PRODUCT USED FOR UNKNOWN INDICATION
  4. ORENITRAM [Suspect]
     Active Substance: TREPROSTINIL
     Indication: PULMONARY HYPERTENSION
     Dosage: 2.75 MG, Q12H
     Route: 048
     Dates: start: 20150717
  5. ORENITRAM [Suspect]
     Active Substance: TREPROSTINIL
     Dosage: 1 MG, UNK
     Route: 048

REACTIONS (6)
  - Haemorrhage [Unknown]
  - Alcohol interaction [Unknown]
  - Eye contusion [Unknown]
  - Dizziness [Recovered/Resolved]
  - Fall [Unknown]
  - Headache [Recovered/Resolved]

NARRATIVE: CASE EVENT DATE: 2015
